FAERS Safety Report 5379828-X (Version None)
Quarter: 2007Q3

REPORT INFORMATION
  Report Type: 
  Country: None (occurrence: None)
  Receive Date: 20070706
  Receipt Date: 20070703
  Transmission Date: 20080115
  Serious: Yes (Hospitalization)
  Sender: FDA-Public Use
  Company Number: US-BRISTOL-MYERS SQUIBB COMPANY-13831433

PATIENT
  Age: 78 Year
  Sex: Male
  Weight: 93 kg

DRUGS (6)
  1. ERBITUX [Suspect]
     Indication: SARCOMA
     Route: 042
     Dates: start: 20070628, end: 20070628
  2. LASIX [Concomitant]
     Route: 048
  3. COMPAZINE [Concomitant]
     Route: 048
  4. LISINOPRIL [Concomitant]
     Route: 048
  5. LIPITOR [Concomitant]
     Route: 048
  6. LEVOTHYROXINE SODIUM [Concomitant]
     Route: 048

REACTIONS (4)
  - NAUSEA [None]
  - TACHYCARDIA [None]
  - VERTIGO [None]
  - VOMITING [None]
